FAERS Safety Report 7798349-8 (Version None)
Quarter: 2011Q4

REPORT INFORMATION
  Report Type: 
  Country: None (occurrence: None)
  Receive Date: 20111005
  Receipt Date: 20110922
  Transmission Date: 20120403
  Serious: Yes (Other)
  Sender: FDA-Public Use
  Company Number: KP-WATSON-2011-15821

PATIENT
  Age: 61 Year
  Sex: Female

DRUGS (3)
  1. KETAMINE HCL [Suspect]
     Indication: POST HERPETIC NEURALGIA
     Dosage: 1 MG, UNK
     Route: 008
  2. MORPHINE SULFATE [Suspect]
     Indication: POST HERPETIC NEURALGIA
     Dosage: 0.4 MG, Q1H
     Route: 008
  3. ROPIVACAINE HYDROCHLORIDE [Suspect]
     Indication: POST HERPETIC NEURALGIA
     Dosage: 4 ML, Q1H (0.2%)
     Route: 008

REACTIONS (1)
  - MYOCLONUS [None]
